FAERS Safety Report 21622917 (Version 5)
Quarter: 2024Q1

REPORT INFORMATION
  Report Type: Report from Study
  Country: US (occurrence: US)
  Receive Date: 20221121
  Receipt Date: 20240216
  Transmission Date: 20240410
  Serious: Yes (Other)
  Sender: FDA-Public Use
  Company Number: US-TAKEDA-US202028716

PATIENT
  Age: 54 Year
  Sex: Female

DRUGS (2)
  1. HUMAN IMMUNOGLOBULIN G [Suspect]
     Active Substance: HUMAN IMMUNOGLOBULIN G
     Indication: Primary immunodeficiency syndrome
     Dosage: 15 GRAM
     Route: 042
  2. HUMAN IMMUNOGLOBULIN G [Suspect]
     Active Substance: HUMAN IMMUNOGLOBULIN G
     Indication: Immunodeficiency common variable

REACTIONS (26)
  - Parathyroid tumour benign [Unknown]
  - Cough [Recovering/Resolving]
  - Illness [Unknown]
  - Poor quality sleep [Unknown]
  - Weight increased [Unknown]
  - Seasonal allergy [Unknown]
  - Blood calcium increased [Unknown]
  - Memory impairment [Unknown]
  - Brain fog [Unknown]
  - Parathyroid disorder [Unknown]
  - Hyperparathyroidism [Unknown]
  - Osteopenia [Unknown]
  - Thyroiditis [Not Recovered/Not Resolved]
  - Bone density decreased [Unknown]
  - Device infusion issue [Unknown]
  - Catheter site swelling [Unknown]
  - Catheter site erythema [Unknown]
  - Sinusitis [Unknown]
  - Migraine [Unknown]
  - Headache [Unknown]
  - Nausea [Unknown]
  - Postural orthostatic tachycardia syndrome [Unknown]
  - Arthropod bite [Unknown]
  - Costochondritis [Unknown]
  - Fatigue [Unknown]
  - Incorrect dose administered by device [Unknown]

NARRATIVE: CASE EVENT DATE: 20200902
